FAERS Safety Report 8359661-7 (Version None)
Quarter: 2012Q2

REPORT INFORMATION
  Report Type: 
  Country: None (occurrence: None)
  Receive Date: 20120515
  Receipt Date: 20120509
  Transmission Date: 20120825
  Serious: Yes (Other)
  Sender: FDA-Public Use
  Company Number: BR-PFIZER INC-2012068010

PATIENT
  Age: 51 Year
  Sex: Male
  Weight: 81 kg

DRUGS (6)
  1. SUTENT [Suspect]
     Indication: RENAL CANCER
     Dosage: 50 MG, 1X/DAY
     Route: 048
     Dates: start: 20100901
  2. IMOSEC [Concomitant]
     Indication: DIARRHOEA
     Dosage: AS NEEDED
  3. DIPIRONE [Concomitant]
     Indication: PAIN IN EXTREMITY
     Dosage: 4X/DAILY (EVERY 6 HOURS), AS NEEDED
  4. RANITIDINE [Concomitant]
     Indication: GASTRIC DISORDER
     Dosage: 150 MG, 1X/DAY
  5. SUTENT [Suspect]
     Dosage: 37.5 MG, 1X/DAY (CYCLE 4 FOR 2)
     Route: 048
     Dates: start: 20120102
  6. FLORATIL [Concomitant]
     Indication: DIARRHOEA
     Dosage: AS NEEDED

REACTIONS (9)
  - DIARRHOEA HAEMORRHAGIC [None]
  - EPISTAXIS [None]
  - PLATELET COUNT DECREASED [None]
  - SKIN SENSITISATION [None]
  - DYSGEUSIA [None]
  - GAIT DISTURBANCE [None]
  - SECRETION DISCHARGE [None]
  - BLISTER [None]
  - NASAL DISCOMFORT [None]
